FAERS Safety Report 8498215-9 (Version None)
Quarter: 2012Q3

REPORT INFORMATION
  Report Type: 
  Country: None (occurrence: None)
  Receive Date: 20120709
  Receipt Date: 20120620
  Transmission Date: 20120928
  Serious: No
  Sender: FDA-Public Use
  Company Number: US-AMGEN-USASP2012038306

PATIENT
  Age: 85 Year
  Sex: Female

DRUGS (1)
  1. ENBREL [Suspect]
     Indication: RHEUMATOID ARTHRITIS
     Dosage: 50 MG, QWK
     Dates: start: 20101209, end: 20110101

REACTIONS (5)
  - CHILLS [None]
  - HYPOAESTHESIA ORAL [None]
  - CHEST PAIN [None]
  - RASH [None]
  - TREMOR [None]
